FAERS Safety Report 8969352 (Version 1)
Quarter: 2012Q4

REPORT INFORMATION
  Report Type: 
  Country: US (occurrence: US)
  Receive Date: 20121218
  Receipt Date: 20121218
  Transmission Date: 20130627
  Serious: No
  Sender: FDA-Public Use
  Company Number: US-BRISTOL-MYERS SQUIBB COMPANY-16284739

PATIENT
  Age: 75 Year
  Sex: Male

DRUGS (1)
  1. ABILIFY TABS 2 MG [Suspect]
     Indication: DEPRESSION
     Dates: start: 201112, end: 201112

REACTIONS (1)
  - Vision blurred [Not Recovered/Not Resolved]
